FAERS Safety Report 4687717-9 (Version None)
Quarter: 2005Q2

REPORT INFORMATION
  Report Type: 
  Country: None (occurrence: None)
  Receive Date: 20050610
  Receipt Date: 20050603
  Transmission Date: 20051028
  Serious: Yes (Other)
  Sender: FDA-Public Use
  Company Number: PHBS2005JP08100

PATIENT

DRUGS (1)
  1. LAMISIL [Suspect]
     Route: 065

REACTIONS (2)
  - ABDOMINAL PAIN [None]
  - PANCREATIC DISORDER [None]
